FAERS Safety Report 6527419-7 (Version None)
Quarter: 2010Q1

REPORT INFORMATION
  Report Type: 
  Country: None (occurrence: None)
  Receive Date: 20100105
  Receipt Date: 20091223
  Transmission Date: 20100710
  Serious: Yes (Other)
  Sender: FDA-Public Use
  Company Number: GB-WATSON-2009-11070

PATIENT

DRUGS (2)
  1. SIMVASTATIN [Suspect]
     Indication: HYPERCHOLESTEROLAEMIA
     Dosage: 20 MG, UNK
     Route: 048
     Dates: start: 20080424, end: 20090411
  2. ALFUZOSIN HCL [Concomitant]
     Indication: URINARY RETENTION
     Dosage: 10 MG, UNK
     Route: 048
     Dates: start: 20080613

REACTIONS (2)
  - PAIN [None]
  - TENDONITIS [None]
